FAERS Safety Report 6849268-2 (Version None)
Quarter: 2010Q3

REPORT INFORMATION
  Report Type: 
  Country: None (occurrence: None)
  Receive Date: 20100716
  Receipt Date: 20100702
  Transmission Date: 20110219
  Serious: Yes (Death, Hospitalization)
  Sender: FDA-Public Use
  Company Number: BR-GENZYME-CLOF-1000932

PATIENT
  Age: 11 Year
  Sex: Male

DRUGS (2)
  1. CLOLAR [Suspect]
     Indication: ACUTE LYMPHOCYTIC LEUKAEMIA
     Dosage: 60 MG, QD
     Route: 042
     Dates: start: 20100408, end: 20100411
  2. CLOLAR [Suspect]
     Dosage: 40 MG, ONCE
     Route: 042
     Dates: start: 20100412, end: 20100412

REACTIONS (8)
  - CARDIOMEGALY [None]
  - DEATH [None]
  - LUNG INFILTRATION [None]
  - NEUTROPENIA [None]
  - PAIN [None]
  - PNEUMONIA [None]
  - PULMONARY OEDEMA [None]
  - RESPIRATORY DISORDER [None]
